FAERS Safety Report 5070158-2 (Version None)
Quarter: 2006Q3

REPORT INFORMATION
  Report Type: 
  Country: None (occurrence: None)
  Receive Date: 20060803
  Receipt Date: 20060727
  Transmission Date: 20061208
  Serious: Yes (Hospitalization)
  Sender: FDA-Public Use
  Company Number: 2006CG01284

PATIENT
  Age: 6 Year
  Sex: Female

DRUGS (4)
  1. NEXIUM [Suspect]
     Route: 048
     Dates: start: 20051121
  2. SINGULAIR [Suspect]
     Route: 048
     Dates: start: 20051004, end: 20060706
  3. SERETIDE [Suspect]
     Route: 055
     Dates: start: 20050501
  4. VENTOLIN [Suspect]
     Route: 055
     Dates: start: 20040501

REACTIONS (2)
  - HAEMATOMA [None]
  - PLATELET ADHESIVENESS DECREASED [None]
